FAERS Safety Report 22232390 (Version 1)
Quarter: 2023Q2

REPORT INFORMATION
  Report Type: Spontaneous
  Country: MX (occurrence: None)
  Receive Date: 20230420
  Receipt Date: 20230420
  Transmission Date: 20230722
  Serious: Yes (Other)
  Sender: FDA-Public Use
  Company Number: MX-ROCHE-3332867

PATIENT
  Sex: Female
  Weight: 88 kg

DRUGS (1)
  1. RITUXIMAB [Suspect]
     Active Substance: RITUXIMAB
     Indication: Multiple sclerosis
     Dosage: DOSAGE WAS NOT INFORMED
     Route: 065

REACTIONS (7)
  - Epilepsy [Unknown]
  - Neoplasm [Unknown]
  - Memory impairment [Unknown]
  - Dysgraphia [Unknown]
  - Off label use [Unknown]
  - Memory impairment [Unknown]
  - Disease progression [Unknown]
